FAERS Safety Report 16795550 (Version 1)
Quarter: 2019Q3

REPORT INFORMATION
  Report Type: Spontaneous
  Country: US (occurrence: US)
  Receive Date: 20190911
  Receipt Date: 20190911
  Transmission Date: 20191005
  Serious: Yes (Hospitalization)
  Sender: FDA-Public Use
  Company Number: US-JNJFOC-20190907440

PATIENT
  Age: 56 Year
  Sex: Male

DRUGS (1)
  1. INVOKANA [Suspect]
     Active Substance: CANAGLIFLOZIN
     Indication: TYPE 2 DIABETES MELLITUS
     Route: 048

REACTIONS (5)
  - Toe amputation [Unknown]
  - Cellulitis [Recovering/Resolving]
  - Acute kidney injury [Recovering/Resolving]
  - Diabetic gangrene [Recovering/Resolving]
  - Osteomyelitis [Recovering/Resolving]

NARRATIVE: CASE EVENT DATE: 201602
